FAERS Safety Report 10048367 (Version 2)
Quarter: 2014Q2

REPORT INFORMATION
  Report Type: Spontaneous
  Country: JP (occurrence: JP)
  Receive Date: 20140331
  Receipt Date: 20140416
  Transmission Date: 20141212
  Serious: Yes (Other)
  Sender: FDA-Public Use
  Company Number: JP-GLAXOSMITHKLINE-B0980849A

PATIENT
  Sex: Female

DRUGS (3)
  1. REQUIP [Suspect]
     Indication: PARKINSON^S DISEASE
     Dosage: 2MG THREE TIMES PER DAY
     Route: 048
  2. TRIHEXYPHENIDYL HYDROCHLORIDE [Concomitant]
     Indication: PARKINSON^S DISEASE
     Route: 048
  3. NEODOPASTON [Concomitant]
     Indication: PARKINSON^S DISEASE
     Route: 048

REACTIONS (3)
  - Sudden onset of sleep [Recovered/Resolved]
  - Road traffic accident [Unknown]
  - Somnolence [Unknown]
